FAERS Safety Report 7236287-X (Version None)
Quarter: 2011Q1

REPORT INFORMATION
  Report Type: 
  Country: None (occurrence: None)
  Receive Date: 20110120
  Receipt Date: 20110107
  Transmission Date: 20110831
  Serious: Yes (Disabling, Other)
  Sender: FDA-Public Use
  Company Number: US-ELI_LILLY_AND_COMPANY-US201101001956

PATIENT
  Sex: Female

DRUGS (9)
  1. CYMBALTA [Suspect]
     Indication: GENERALISED ANXIETY DISORDER
     Dosage: 120 MG, EACH EVENING
  2. NIFEDIPINE [Concomitant]
  3. MORPHINE SULFATE [Concomitant]
  4. LORAZEPAM [Concomitant]
  5. KADIAN [Concomitant]
  6. OXYBUTYNIN [Concomitant]
  7. TRAZODONE [Concomitant]
  8. ABILIFY [Concomitant]
  9. SERTRALINE [Concomitant]

REACTIONS (4)
  - DEPRESSION [None]
  - SUICIDAL IDEATION [None]
  - SELF-INJURIOUS IDEATION [None]
  - MENTAL DISORDER [None]
